FAERS Safety Report 5721555-0 (Version None)
Quarter: 2008Q2

REPORT INFORMATION
  Report Type: 
  Country: None (occurrence: None)
  Receive Date: 20080429
  Receipt Date: 20070227
  Transmission Date: 20081010
  Serious: No
  Sender: FDA-Public Use
  Company Number: US-ASTRAZENECA-2007UW03726

PATIENT
  Age: 81 Year
  Sex: Male
  Weight: 86.2 kg

DRUGS (7)
  1. NEXIUM [Suspect]
     Indication: GASTROOESOPHAGEAL REFLUX DISEASE
     Route: 048
     Dates: start: 20070101
  2. NEXIUM [Suspect]
     Indication: ILL-DEFINED DISORDER
     Route: 048
     Dates: start: 20070101
  3. NEXIUM [Suspect]
     Indication: GASTRIC ULCER
     Route: 048
     Dates: start: 20070101
  4. ANTIBIOTIC [Concomitant]
  5. THYROID TAB [Concomitant]
  6. VITAMIN B-12 [Concomitant]
  7. METAMUCIL [Concomitant]

REACTIONS (1)
  - ILL-DEFINED DISORDER [None]
